FAERS Safety Report 25637315 (Version 2)
Quarter: 2025Q3

REPORT INFORMATION
  Report Type: Spontaneous
  Country: PA (occurrence: PA)
  Receive Date: 20250804
  Receipt Date: 20250930
  Transmission Date: 20251020
  Serious: Yes (Other)
  Sender: AMGEN
  Company Number: PA-PFIZER INC-PV202500092100

PATIENT
  Age: 65 Year
  Sex: Female

DRUGS (1)
  1. ENBREL [Suspect]
     Active Substance: ETANERCEPT
     Indication: Product used for unknown indication
     Dosage: 50 MG, WEEKLY
     Route: 065

REACTIONS (7)
  - Skin fissures [Recovered/Resolved]
  - Impaired healing [Unknown]
  - Haemorrhage [Recovered/Resolved]
  - Muscular weakness [Unknown]
  - Tremor [Unknown]
  - Pain in extremity [Unknown]
  - Fall [Unknown]
